FAERS Safety Report 9836504 (Version 1)
Quarter: 2014Q1

REPORT INFORMATION
  Report Type: Spontaneous
  Country: GB (occurrence: GB)
  Receive Date: 20140123
  Receipt Date: 20140123
  Transmission Date: 20141002
  Serious: Yes (Hospitalization)
  Sender: FDA-Public Use
  Company Number: GB-ROCHE-1336197

PATIENT
  Age: 58 Year
  Sex: Male

DRUGS (7)
  1. PEG-INTERFERON ALFA 2A [Suspect]
     Indication: HEPATITIS C
     Route: 058
     Dates: start: 20130710, end: 20131226
  2. RIBAVIRIN [Suspect]
     Indication: HEPATITIS C
     Route: 048
     Dates: start: 20130710, end: 20130828
  3. RIBAVIRIN [Suspect]
     Route: 048
     Dates: start: 20130918, end: 20131226
  4. INCIVO [Suspect]
     Indication: HEPATITIS C
     Route: 048
     Dates: start: 20130710, end: 20131002
  5. ATAZANAVIR [Concomitant]
  6. RALTEGRAVIR [Concomitant]
  7. RITONAVIR [Concomitant]

REACTIONS (4)
  - Anaemia [Recovered/Resolved]
  - Leukopenia [Unknown]
  - Renal impairment [Recovered/Resolved]
  - Off label use [Unknown]
